FAERS Safety Report 21699954 (Version 2)
Quarter: 2023Q1

REPORT INFORMATION
  Report Type: Spontaneous
  Country: US (occurrence: US)
  Receive Date: 20221208
  Receipt Date: 20230123
  Transmission Date: 20230418
  Serious: No
  Sender: FDA-Public Use
  Company Number: US-BAYER-2022P026108

PATIENT
  Age: 27 Year
  Sex: Female
  Weight: 50.34 kg

DRUGS (2)
  1. MIRENA [Suspect]
     Active Substance: LEVONORGESTREL
     Indication: Intrauterine contraception
     Dosage: 20?G/DAY
     Route: 015
     Dates: start: 202106
  2. INFLECTRA [Suspect]
     Active Substance: INFLIXIMAB-DYYB
     Dosage: UNK

REACTIONS (4)
  - Heavy menstrual bleeding [None]
  - Emotional disorder [None]
  - Irritability [None]
  - Bone pain [None]

NARRATIVE: CASE EVENT DATE: 20221101
